FAERS Safety Report 9076601 (Version 1)
Quarter: 2013Q1

REPORT INFORMATION
  Report Type: Report from Study
  Country: US (occurrence: US)
  Receive Date: 20130129
  Receipt Date: 20130129
  Transmission Date: 20140127
  Serious: No
  Sender: FDA-Public Use
  Company Number: US-ABBOTT-12P-163-0947097-00

PATIENT
  Age: 40 Year
  Sex: Female

DRUGS (5)
  1. HUMIRA 40 MG/0.8 ML PEN [Suspect]
     Indication: PSORIATIC ARTHROPATHY
     Dates: start: 201203
  2. INDOMETHACIN [Concomitant]
     Indication: PRODUCT USED FOR UNKNOWN INDICATION
     Dosage: 1 TAB UP TO 3 TIMES DAILY
  3. CYMBALTA [Concomitant]
     Indication: PAIN
  4. UNKNOWN MUSCLE RELAXER THAT STARTS WITH A ^C^ [Concomitant]
     Indication: INSOMNIA
  5. AMBIEN [Concomitant]
     Indication: INSOMNIA

REACTIONS (7)
  - Injection site pain [Not Recovered/Not Resolved]
  - Injection site bruising [Unknown]
  - Pain [Unknown]
  - Product quality issue [Unknown]
  - Poor quality drug administered [Unknown]
  - Wrong technique in drug usage process [Unknown]
  - Incorrect dose administered [Unknown]
